FAERS Safety Report 6256218-9 (Version None)
Quarter: 2009Q3

REPORT INFORMATION
  Report Type: 
  Country: None (occurrence: None)
  Receive Date: 20090706
  Receipt Date: 20090602
  Transmission Date: 20100115
  Serious: No
  Sender: FDA-Public Use
  Company Number: US-BAYER-200922463NA

PATIENT

DRUGS (1)
  1. CIPRO [Suspect]
     Indication: DRUG USE FOR UNKNOWN INDICATION
     Route: 042
     Dates: start: 20090601

REACTIONS (3)
  - INFUSION SITE EXTRAVASATION [None]
  - INJECTION SITE INDURATION [None]
  - VESSEL PUNCTURE SITE REACTION [None]
